FAERS Safety Report 23099942 (Version 1)
Quarter: 2023Q4

REPORT INFORMATION
  Report Type: Spontaneous
  Country: GB (occurrence: GB)
  Receive Date: 20231024
  Receipt Date: 20231024
  Transmission Date: 20240110
  Serious: Yes (Hospitalization)
  Sender: FDA-Public Use
  Company Number: GB-VERTEX PHARMACEUTICALS-2023-012132

PATIENT
  Sex: Female

DRUGS (7)
  1. ELEXACAFTOR\IVACAFTOR\TEZACAFTOR [Suspect]
     Active Substance: ELEXACAFTOR\IVACAFTOR\TEZACAFTOR
     Indication: Cystic fibrosis
     Dosage: 75MG IVACAFTOR/ 50MG TEZACAFTOR/ 100MG ELEXACAFTOR, 2 TABLETS IN AM
     Route: 048
     Dates: start: 2019
  2. KALYDECO [Suspect]
     Active Substance: IVACAFTOR
     Indication: Cystic fibrosis
     Dosage: 1 TABLET IN THE EVENING
     Route: 048
     Dates: start: 2019
  3. VENTOLIN [Concomitant]
     Active Substance: ALBUTEROL SULFATE
     Dosage: INHALER
     Route: 055
  4. BECLOMETHASONE\FORMOTEROL [Concomitant]
     Active Substance: BECLOMETHASONE\FORMOTEROL
     Dosage: INHALER
     Route: 055
  5. TIOTROPIUM [Concomitant]
     Active Substance: TIOTROPIUM
  6. SODIUM CHLORIDE [Concomitant]
     Active Substance: SODIUM CHLORIDE
  7. AZTREONAM [Concomitant]
     Active Substance: AZTREONAM

REACTIONS (4)
  - Chest discomfort [Unknown]
  - Pulmonary pain [Unknown]
  - Secretion discharge [Unknown]
  - Nasopharyngitis [Unknown]

NARRATIVE: CASE EVENT DATE: 20230101
